FAERS Safety Report 24730864 (Version 1)
Quarter: 2024Q4

REPORT INFORMATION
  Report Type: Spontaneous
  Country: US (occurrence: None)
  Receive Date: 20241212
  Receipt Date: 20241212
  Transmission Date: 20250115
  Serious: Yes (Death)
  Sender: Public
  Company Number: None

PATIENT
  Age: 66 Year
  Sex: Male
  Weight: 229 kg

DRUGS (10)
  1. MYLOTARG [Suspect]
     Active Substance: GEMTUZUMAB OZOGAMICIN
     Indication: Acute myeloid leukaemia
     Dosage: OTHER FREQUENCY : DAYS 1,4,7;?
     Route: 042
     Dates: start: 20241109, end: 20241114
  2. TAGRAXOFUSP-ERZS [Suspect]
     Active Substance: TAGRAXOFUSP-ERZS
     Indication: Acute myeloid leukaemia
     Dosage: OTHER FREQUENCY : DAYS 5,6,7;?
     Route: 042
     Dates: start: 20241112, end: 20241114
  3. LEVAQUIN [Concomitant]
     Active Substance: LEVOFLOXACIN
  4. BACTRIM [Concomitant]
     Active Substance: SULFAMETHOXAZOLE\TRIMETHOPRIM
  5. POSACONAZOLE 300MG [Concomitant]
  6. VALACYCLOVIR [Concomitant]
     Active Substance: VALACYCLOVIR HYDROCHLORIDE
  7. ALLOPURINOL [Concomitant]
     Active Substance: ALLOPURINOL
  8. METFORMIN [Concomitant]
     Active Substance: METFORMIN HYDROCHLORIDE
  9. VANCOMYCIN [Concomitant]
     Active Substance: VANCOMYCIN
  10. CEFEPIME [Concomitant]
     Active Substance: CEFEPIME HYDROCHLORIDE

REACTIONS (12)
  - Syncope [None]
  - Capillary leak syndrome [None]
  - Febrile neutropenia [None]
  - Aspartate aminotransferase increased [None]
  - Blood culture positive [None]
  - Sepsis [None]
  - Refusal of treatment by patient [None]
  - Melaena [None]
  - Haemoglobin decreased [None]
  - Dyspnoea [None]
  - Troponin increased [None]
  - Blood sodium increased [None]

NARRATIVE: CASE EVENT DATE: 20241204
